FAERS Safety Report 20012256 (Version 2)
Quarter: 2022Q1

REPORT INFORMATION
  Report Type: Other
  Country: US (occurrence: None)
  Receive Date: 20211029
  Receipt Date: 20220331
  Transmission Date: 20220423
  Serious: Yes (Hospitalization, Other)
  Sender: FDA-Public Use
  Company Number: US-ROCHE-2940072

PATIENT
  Sex: Female

DRUGS (29)
  1. OCREVUS [Suspect]
     Active Substance: OCRELIZUMAB
     Indication: Relapsing-remitting multiple sclerosis
     Dosage: ONGOING NO ONLY HAD 1 DOSE, INFUSE 600MG Q6 MONTHS
     Route: 042
     Dates: start: 20200103, end: 20200103
  2. OCREVUS [Suspect]
     Active Substance: OCRELIZUMAB
     Indication: Secondary progressive multiple sclerosis
  3. TRAMADOL HCL [Concomitant]
     Active Substance: TRAMADOL HYDROCHLORIDE
  4. METHOCARBAMOL [Concomitant]
     Active Substance: METHOCARBAMOL
  5. TOPAMAX [Concomitant]
     Active Substance: TOPIRAMATE
  6. GABAPENTIN [Concomitant]
     Active Substance: GABAPENTIN
  7. BACLOFEN [Concomitant]
     Active Substance: BACLOFEN
  8. VOLTAREN [Concomitant]
     Active Substance: DICLOFENAC SODIUM
  9. ACIDOPHILUS [Concomitant]
     Active Substance: LACTOBACILLUS ACIDOPHILUS
  10. AMITRIPTYLINE [Concomitant]
     Active Substance: AMITRIPTYLINE
  11. ATORVASTATIN CALCIUM [Concomitant]
     Active Substance: ATORVASTATIN CALCIUM
  12. ASCORBIC ACID [Concomitant]
     Active Substance: ASCORBIC ACID
  13. BUTALBITAL [Concomitant]
     Active Substance: BUTALBITAL
  14. CETIRIZINE HCL [Concomitant]
     Active Substance: CETIRIZINE HYDROCHLORIDE
  15. PLAVIX [Concomitant]
     Active Substance: CLOPIDOGREL BISULFATE
  16. FUROSEMIDE [Concomitant]
     Active Substance: FUROSEMIDE
  17. OXYBUTYNIN CHLORIDE [Concomitant]
     Active Substance: OXYBUTYNIN CHLORIDE
  18. PANTOPRAZOLE SODIUM [Concomitant]
     Active Substance: PANTOPRAZOLE SODIUM
  19. HYDROMORPHONE HYDROCHLORIDE [Concomitant]
     Active Substance: HYDROMORPHONE HYDROCHLORIDE
  20. LEVOFLOXACIN [Concomitant]
     Active Substance: LEVOFLOXACIN
  21. FLUOXETINE [Concomitant]
     Active Substance: FLUOXETINE HYDROCHLORIDE
  22. CLINDAMYCIN HYDROCHLORIDE [Concomitant]
     Active Substance: CLINDAMYCIN HYDROCHLORIDE
  23. IBUPROFEN [Concomitant]
     Active Substance: IBUPROFEN
  24. IPRATROPIUM BROMIDE [Concomitant]
     Active Substance: IPRATROPIUM BROMIDE
  25. MORPHINE SULFATE [Concomitant]
     Active Substance: MORPHINE SULFATE
  26. MACRODANTIN [Concomitant]
     Active Substance: NITROFURANTOIN
  27. PNEUMOCOCCAL 7-VALENT CONJUGATE VACCINE (DIPHTHERIA CRM197 PROTEIN) [Concomitant]
     Active Substance: PNEUMOCOCCAL 7-VALENT CONJUGATE VACCINE (DIPHTHERIA CRM197 PROTEIN)
  28. CODEINE SULFATE [Concomitant]
     Active Substance: CODEINE SULFATE
  29. KLONOPIN [Concomitant]
     Active Substance: CLONAZEPAM
     Indication: Product used for unknown indication
     Route: 048
     Dates: start: 20190827

REACTIONS (3)
  - Urinary tract infection [Unknown]
  - Cellulitis [Unknown]
  - Nephrolithiasis [Recovered/Resolved]
